FAERS Safety Report 18437842 (Version 1)
Quarter: 2020Q4

REPORT INFORMATION
  Report Type: Spontaneous
  Country: US (occurrence: US)
  Receive Date: 20201028
  Receipt Date: 20201028
  Transmission Date: 20210114
  Serious: Yes (Other)
  Sender: FDA-Public Use
  Company Number: US-ASTRAZENECA-2020SF39616

PATIENT
  Age: 2917 Week
  Sex: Female
  Weight: 68 kg

DRUGS (2)
  1. ROSUVASTATIN CALCIUM. [Suspect]
     Active Substance: ROSUVASTATIN CALCIUM
     Indication: BLOOD CHOLESTEROL
     Route: 048
     Dates: start: 2010
  2. SYMBICORT [Suspect]
     Active Substance: BUDESONIDE\FORMOTEROL FUMARATE DIHYDRATE
     Indication: CHRONIC OBSTRUCTIVE PULMONARY DISEASE
     Dosage: 80/4.5 MGS ONE OR TWO PUFFS DAILY
     Route: 055
     Dates: start: 2015

REACTIONS (3)
  - Unevaluable event [Unknown]
  - Antinuclear antibody positive [Unknown]
  - Petechiae [Unknown]

NARRATIVE: CASE EVENT DATE: 201906
